FAERS Safety Report 21790185 (Version 1)
Quarter: 2022Q4

REPORT INFORMATION
  Report Type: Spontaneous
  Country: US (occurrence: US)
  Receive Date: 20221228
  Receipt Date: 20221228
  Transmission Date: 20230113
  Serious: No
  Sender: FDA-Public Use
  Company Number: US-BRISTOL-MYERS SQUIBB COMPANY-2022-159744

PATIENT
  Age: 51 Year
  Sex: Female

DRUGS (3)
  1. INREBIC [Suspect]
     Active Substance: FEDRATINIB HYDROCHLORIDE
     Indication: Myeloproliferative neoplasm
  2. JAKAFI [Concomitant]
     Active Substance: RUXOLITINIB
     Indication: Product used for unknown indication
  3. PEGASYS [Concomitant]
     Active Substance: PEGINTERFERON ALFA-2A
     Indication: Product used for unknown indication

REACTIONS (2)
  - Nausea [Unknown]
  - Pain in extremity [Unknown]
